FAERS Safety Report 10590055 (Version 1)
Quarter: 2014Q4

REPORT INFORMATION
  Report Type: Spontaneous
  Country: US (occurrence: None)
  Receive Date: 20141114
  Receipt Date: 20141114
  Transmission Date: 20150529
  Serious: Yes (Other)
  Sender: FDA-Public Use
  Company Number: 2014-US-012328

PATIENT
  Age: 61 Year
  Sex: Female

DRUGS (15)
  1. HUMALOG [Concomitant]
     Active Substance: INSULIN LISPRO
  2. PROAIR HFA [Concomitant]
     Active Substance: ALBUTEROL SULFATE
  3. LIPITOR [Concomitant]
     Active Substance: ATORVASTATIN CALCIUM
  4. ZOLPIDEM [Concomitant]
     Active Substance: ZOLPIDEM\ZOLPIDEM TARTRATE
  5. XYREM [Suspect]
     Active Substance: SODIUM OXYBATE
     Indication: CATAPLEXY
     Route: 048
     Dates: start: 201105, end: 2011
  6. PRILOSEC (OMEPRAZOLE) [Concomitant]
     Active Substance: OMEPRAZOLE MAGNESIUM
  7. ASPIRIN (ACETYLSALICYLIC ACID) [Concomitant]
     Active Substance: ASPIRIN
  8. SIMVASTATIN. [Concomitant]
     Active Substance: SIMVASTATIN
  9. FUROSEMIDE (FUROSEMIDE) [Concomitant]
     Active Substance: FUROSEMIDE
  10. ATENOLOL. [Concomitant]
     Active Substance: ATENOLOL
  11. GLIPIZIDE. [Concomitant]
     Active Substance: GLIPIZIDE
  12. LISINOPRIL. [Concomitant]
     Active Substance: LISINOPRIL
  13. ZETIA [Concomitant]
     Active Substance: EZETIMIBE
  14. XYREM [Suspect]
     Active Substance: SODIUM OXYBATE
     Indication: NARCOLEPSY
     Route: 048
     Dates: start: 201105, end: 2011
  15. CREON [Concomitant]
     Active Substance: PANCRELIPASE AMYLASE\PANCRELIPASE LIPASE\PANCRELIPASE PROTEASE

REACTIONS (4)
  - Cataplexy [None]
  - Fall [None]
  - Rib fracture [None]
  - Drug dose omission [None]

NARRATIVE: CASE EVENT DATE: 20140920
